FAERS Safety Report 8368172-4 (Version None)
Quarter: 2012Q2

REPORT INFORMATION
  Report Type: 
  Country: None (occurrence: None)
  Receive Date: 20120517
  Receipt Date: 20120503
  Transmission Date: 20120825
  Serious: Yes (Other)
  Sender: FDA-Public Use
  Company Number: CHPA2012US010367

PATIENT
  Sex: Female

DRUGS (2)
  1. GAS-X EXTSTR CHEWABLE TABS CHERRY CREME [Suspect]
     Indication: FLATULENCE
     Dosage: 1-2 DF, 3 TIMES A WEEK
     Route: 048
     Dates: start: 19920101
  2. GAS-X EXTSTR CHEWABLE TABS CHERRY CREME [Suspect]
     Dosage: 1-2 DF, 3 TIMES A WEEK
     Route: 048
     Dates: start: 20020101

REACTIONS (4)
  - DIARRHOEA [None]
  - OFF LABEL USE [None]
  - BLINDNESS [None]
  - IRRITABLE BOWEL SYNDROME [None]
